FAERS Safety Report 24164365 (Version 5)
Quarter: 2024Q4

REPORT INFORMATION
  Report Type: Spontaneous
  Country: JP (occurrence: JP)
  Receive Date: 20240801
  Receipt Date: 20241001
  Transmission Date: 20250115
  Serious: Yes (Hospitalization)
  Sender: ELI LILLY AND CO
  Company Number: JP-ELI_LILLY_AND_COMPANY-JP202407016724

PATIENT
  Age: 44 Year
  Sex: Male
  Weight: 74.8 kg

DRUGS (2)
  1. MOUNJARO [Suspect]
     Active Substance: TIRZEPATIDE
     Indication: Type 2 diabetes mellitus
     Dosage: 2.5 MG
     Route: 058
     Dates: start: 20240614
  2. PEMAFIBRATE [Concomitant]
     Active Substance: PEMAFIBRATE
     Indication: Hyperlipidaemia
     Dosage: 0.2 MG
     Route: 065

REACTIONS (1)
  - Supraventricular tachycardia [Unknown]

NARRATIVE: CASE EVENT DATE: 20240619
